FAERS Safety Report 6092724-8 (Version None)
Quarter: 2009Q1

REPORT INFORMATION
  Report Type: 
  Country: None (occurrence: None)
  Receive Date: 20090225
  Receipt Date: 20090220
  Transmission Date: 20090719
  Serious: Yes (Hospitalization)
  Sender: FDA-Public Use
  Company Number: FR-WYE-G03161009

PATIENT
  Sex: Male
  Weight: 9.55 kg

DRUGS (2)
  1. ADVIL [Suspect]
     Indication: PYREXIA
     Route: 048
     Dates: start: 20081025, end: 20081027
  2. PARACETAMOL [Concomitant]
     Dosage: ONE DOSE-FORM TOTAL DAILY
     Route: 048
     Dates: start: 20081025

REACTIONS (3)
  - GASTRITIS HAEMORRHAGIC [None]
  - INFLAMMATION [None]
  - RASH [None]
